FAERS Safety Report 6840207-7 (Version None)
Quarter: 2010Q3

REPORT INFORMATION
  Report Type: 
  Country: None (occurrence: None)
  Receive Date: 20100714
  Receipt Date: 20100531
  Transmission Date: 20110219
  Serious: Yes (Other)
  Sender: FDA-Public Use
  Company Number: PHHY2010VE37695

PATIENT
  Sex: Female

DRUGS (8)
  1. SANDOSTATIN [Suspect]
     Indication: NEUROENDOCRINE TUMOUR
     Dosage: 0.5 ML, QD
     Route: 058
     Dates: start: 20030701, end: 20090901
  2. SANDOSTATIN LAR [Suspect]
     Indication: NEUROENDOCRINE TUMOUR
     Dosage: UNK
     Route: 030
     Dates: start: 20091001
  3. INTRON A [Concomitant]
     Dosage: THREE TIMES A WEEK
     Route: 058
  4. GERIATRIC [Concomitant]
     Route: 048
  5. POLIVITAMINE [Concomitant]
  6. INMUNIX PLUS [Concomitant]
     Route: 048
  7. HEPAPLUS [Concomitant]
     Indication: LIVER DISORDER
     Route: 048
  8. SALVAJE [Concomitant]
     Indication: HORMONE REPLACEMENT THERAPY

REACTIONS (1)
  - HEPATIC PAIN [None]
